FAERS Safety Report 19529556 (Version 2)
Quarter: 2021Q3

REPORT INFORMATION
  Report Type: Spontaneous
  Country: PR (occurrence: PR)
  Receive Date: 20210713
  Receipt Date: 20210730
  Transmission Date: 20211014
  Serious: Yes (Other)
  Sender: FDA-Public Use
  Company Number: PR-PFIZER INC-2021813921

PATIENT
  Age: 59 Year
  Sex: Female

DRUGS (1)
  1. PREMPRO [Suspect]
     Active Substance: ESTROGENS, CONJUGATED\MEDROXYPROGESTERONE ACETATE
     Dosage: UNK

REACTIONS (1)
  - Haemorrhage [Unknown]
